FAERS Safety Report 8291643-6 (Version None)
Quarter: 2012Q2

REPORT INFORMATION
  Report Type: 
  Country: None (occurrence: None)
  Receive Date: 20120417
  Receipt Date: 20110920
  Transmission Date: 20120825
  Serious: No
  Sender: FDA-Public Use
  Company Number: US-ASTRAZENECA-2010SE38989

PATIENT
  Age: 64 Year
  Sex: Male

DRUGS (9)
  1. LOTRIL [Concomitant]
  2. COQ ENZYME [Concomitant]
  3. TOPROL-XL [Concomitant]
     Route: 048
  4. NEXIUM [Suspect]
     Indication: GASTROOESOPHAGEAL REFLUX DISEASE
     Route: 048
     Dates: start: 20010101, end: 20100101
  5. PLAVIX [Concomitant]
  6. GLUCOSAMIDE CHONDROITIN [Concomitant]
  7. ASPIRIN [Concomitant]
  8. LOVAZA [Concomitant]
  9. ZOCOR [Concomitant]

REACTIONS (3)
  - MALAISE [None]
  - GASTROOESOPHAGEAL REFLUX DISEASE [None]
  - DRUG DOSE OMISSION [None]
